FAERS Safety Report 7653341-9 (Version None)
Quarter: 2011Q3

REPORT INFORMATION
  Report Type: 
  Country: None (occurrence: None)
  Receive Date: 20110803
  Receipt Date: 20110721
  Transmission Date: 20111222
  Serious: Yes (Other)
  Sender: FDA-Public Use
  Company Number: JP-CELGENEUS-087-21880-11031637

PATIENT
  Sex: Male

DRUGS (21)
  1. OXYCONTIN [Concomitant]
     Dosage: 10 MILLIGRAM
     Route: 048
     Dates: start: 20090105, end: 20110116
  2. ASPIRIN [Concomitant]
     Indication: PROPHYLAXIS
     Dosage: 100 MILLIGRAM
     Route: 048
     Dates: start: 20101223, end: 20110116
  3. DEXAMETHASONE [Suspect]
     Dosage: 40 MILLIGRAM
     Route: 048
     Dates: start: 20101228, end: 20101231
  4. MUCOSTA [Concomitant]
     Indication: PROPHYLAXIS
     Dosage: 300 MILLIGRAM
     Route: 048
     Dates: start: 20100917, end: 20110116
  5. OMEPRAZOLE [Concomitant]
     Dosage: 20 MILLIGRAM
     Route: 048
     Dates: start: 20080222, end: 20110116
  6. ADONA [Concomitant]
     Indication: PROPHYLAXIS
     Dosage: 90 MILLIGRAM
     Route: 048
     Dates: start: 20080924, end: 20110116
  7. SOLDEM 1 [Concomitant]
     Dosage: 500 MILLILITER
     Route: 041
     Dates: start: 20110108, end: 20110110
  8. LYRICA [Concomitant]
     Dosage: 75 MILLIGRAM
     Route: 048
     Dates: start: 20101002, end: 20110116
  9. VITAMEDIN [Concomitant]
     Dosage: 1 V
     Route: 041
     Dates: start: 20110108, end: 20110110
  10. DEXAMETHASONE [Suspect]
     Dosage: 40 MILLIGRAM
     Route: 048
     Dates: start: 20110105, end: 20110108
  11. MAGNESIUM SULFATE [Concomitant]
     Dosage: 990 MILLIGRAM
     Route: 048
     Dates: start: 20090211, end: 20110116
  12. CARNACULIN [Concomitant]
     Dosage: 150
     Route: 048
     Dates: start: 20080924, end: 20101227
  13. TWINPAL [Concomitant]
     Dosage: 2000 MILLILITER
     Route: 041
     Dates: start: 20110111, end: 20110112
  14. FULCALIQ 2 [Concomitant]
     Dosage: 2006 MILLILITER
     Route: 041
     Dates: start: 20110115, end: 20110116
  15. ITRACONAZOLE [Concomitant]
     Indication: PROPHYLAXIS
     Dosage: 100 MILLIGRAM
     Route: 048
     Dates: start: 20080131, end: 20110116
  16. DEXAMETHASONE [Suspect]
     Indication: MULTIPLE MYELOMA
     Dosage: 40 MILLIGRAM
     Route: 048
     Dates: start: 20101220, end: 20101223
  17. METHYCOBAL [Concomitant]
     Dosage: 1500 UG
     Route: 048
     Dates: start: 20080322, end: 20110116
  18. POTASSIUM CHLORIDE [Concomitant]
     Dosage: 1500 MILLILITER
     Route: 041
     Dates: start: 20110108, end: 20110110
  19. ASCORBIC ACID [Concomitant]
     Dosage: 500 MILLIGRAM
     Route: 041
     Dates: start: 20110108, end: 20110110
  20. REVLIMID [Suspect]
     Indication: MULTIPLE MYELOMA
     Dosage: 25 MILLIGRAM
     Route: 048
     Dates: start: 20101220, end: 20110106
  21. FULCALIQ 1 [Concomitant]
     Dosage: 1806 MILLILITER
     Route: 041
     Dates: start: 20110113, end: 20110114

REACTIONS (6)
  - ANAEMIA [None]
  - INFECTION [None]
  - THROMBOCYTOPENIA [None]
  - ARRHYTHMIA [None]
  - NEUTROPENIA [None]
  - HYPERGLYCAEMIA [None]
